FAERS Safety Report 21198031 (Version 1)
Quarter: 2022Q3

REPORT INFORMATION
  Report Type: Report from Study
  Country: IL (occurrence: IL)
  Receive Date: 20220810
  Receipt Date: 20220810
  Transmission Date: 20221026
  Serious: Yes (Death)
  Sender: FDA-Public Use
  Company Number: IL-ABBVIE-22K-082-4497272-00

PATIENT
  Age: 75 Year
  Sex: Male
  Weight: 75 kg

DRUGS (16)
  1. VENETOCLAX [Suspect]
     Active Substance: VENETOCLAX
     Indication: Chronic lymphocytic leukaemia
     Dosage: 20 MG, DOSE INCREASE ACCORDING TO VENETOCLAX DOSE TITRATION SCHEME
     Route: 048
     Dates: start: 20211013, end: 20211019
  2. VENETOCLAX [Suspect]
     Active Substance: VENETOCLAX
     Dosage: 50 MG, DOSE INCREASE ACCORDING TO VENETOCLAX DOSE TITRATION SCHEME
     Route: 048
     Dates: start: 20211020, end: 20211026
  3. VENETOCLAX [Suspect]
     Active Substance: VENETOCLAX
     Dosage: 100 MG, OTHER ADVERSE EVENT (NON-HEMATOLOGIC TOXICITIES)
     Route: 048
     Dates: start: 20211027, end: 20211101
  4. VENETOCLAX [Suspect]
     Active Substance: VENETOCLAX
     Dosage: 100 MG, OTHER ADVERSE EVENT (NON-HEMATOLOGIC TOXICITIES)
     Route: 048
     Dates: start: 20211123, end: 20211125
  5. CARVEDILOL [Concomitant]
     Active Substance: CARVEDILOL
     Indication: Cardiac failure congestive
     Dates: end: 20211125
  6. LORAZEPAM [Concomitant]
     Active Substance: LORAZEPAM
     Indication: Prophylaxis
     Dates: end: 20211125
  7. ASPIRIN [Concomitant]
     Active Substance: ASPIRIN
     Indication: Prophylaxis
     Dates: start: 20090722, end: 20211125
  8. VALSARTAN [Concomitant]
     Active Substance: VALSARTAN
     Indication: Cardiac failure congestive
     Dates: start: 20120103, end: 20211125
  9. REPAGLINIDE [Concomitant]
     Active Substance: REPAGLINIDE
     Indication: Diabetes mellitus
     Dates: start: 20090722, end: 20211125
  10. FOLEX [Concomitant]
     Indication: Prophylaxis
     Dates: start: 20210303, end: 20211125
  11. FUSID [Concomitant]
     Indication: Prophylaxis
     Dates: start: 20210303, end: 20211125
  12. CITALOPRAM [Concomitant]
     Active Substance: CITALOPRAM HYDROBROMIDE
     Indication: Prophylaxis
     Dates: start: 20210303, end: 20211125
  13. BISACODYL [Concomitant]
     Active Substance: BISACODYL
     Indication: Prophylaxis
     Dates: start: 20210303, end: 20211125
  14. BROTIZOLAM [Concomitant]
     Active Substance: BROTIZOLAM
     Indication: Prophylaxis
     Dates: end: 20211125
  15. TAMSULOSIN HYDROCHLORIDE [Concomitant]
     Active Substance: TAMSULOSIN HYDROCHLORIDE
     Indication: Benign prostatic hyperplasia
     Dates: end: 20211125
  16. PREDNISONE [Concomitant]
     Active Substance: PREDNISONE
     Indication: Prophylaxis
     Dates: end: 20211125

REACTIONS (1)
  - Cardiac failure congestive [Fatal]

NARRATIVE: CASE EVENT DATE: 20211123
